FAERS Safety Report 18050417 (Version 6)
Quarter: 2020Q4

REPORT INFORMATION
  Report Type: Report from Study
  Country: US (occurrence: US)
  Receive Date: 20200721
  Receipt Date: 20201211
  Transmission Date: 20210113
  Serious: Yes (Other)
  Sender: FDA-Public Use
  Company Number: US-PFIZER INC-2020263657

PATIENT
  Age: 39 Year
  Sex: Female

DRUGS (3)
  1. IBRANCE [Suspect]
     Active Substance: PALBOCICLIB
     Dosage: 100 MG, CYCLIC (DAILY FOR 21 DAYS ON AND 7 DAYS OFF)
     Route: 048
     Dates: start: 20200716
  2. FEMARA [Concomitant]
     Active Substance: LETROZOLE
     Dosage: UNK, DAILY
     Route: 048
  3. IBRANCE [Suspect]
     Active Substance: PALBOCICLIB
     Indication: BREAST CANCER FEMALE
     Dosage: 125 MG, CYCLIC (DAILY FOR 21 DAYS ON AND 7 DAYS OFF)
     Route: 048
     Dates: start: 20200616

REACTIONS (7)
  - Rash [Recovering/Resolving]
  - White blood cell count decreased [Recovering/Resolving]
  - Urticaria [Recovering/Resolving]
  - Myelosuppression [Unknown]
  - Red blood cell count decreased [Unknown]
  - Product dose omission in error [Unknown]
  - Fatigue [Unknown]

NARRATIVE: CASE EVENT DATE: 2020
